FAERS Safety Report 6968275 (Version 1)
Quarter: 2020Q3

REPORT INFORMATION
  Report Type: Report from Study
  Country: US (occurrence: US)
  Receive Date: 20090414
  Receipt Date: 20090414
  Transmission Date: 20201104
  Serious: Yes (Hospitalization, Other)
  Sender: FDA-Public Use
  Company Number: US-ROCHE-625871

PATIENT
  Age: 68 Year
  Sex: Female

DRUGS (1)
  1. IBANDRONIC ACID. [Suspect]
     Active Substance: IBANDRONIC ACID
     Indication: OSTEOPOROSIS
     Route: 065
     Dates: end: 200801

REACTIONS (3)
  - Respiratory arrest [Unknown]
  - Wrist fracture [Unknown]
  - Fall [None]

NARRATIVE: CASE EVENT DATE: 20071201
